FAERS Safety Report 5181151-3 (Version None)
Quarter: 2006Q4

REPORT INFORMATION
  Report Type: 
  Country: None (occurrence: None)
  Receive Date: 20061220
  Receipt Date: 20061213
  Transmission Date: 20070319
  Serious: Yes (Other)
  Sender: FDA-Public Use
  Company Number: US-JNJFOC-20061205048

PATIENT

DRUGS (9)
  1. REOPRO [Suspect]
     Indication: CORONARY ANGIOPLASTY
  2. CLOPIDOGREL BISULFATE [Concomitant]
     Indication: ANGINA UNSTABLE
  3. CLOPIDOGREL BISULFATE [Concomitant]
     Indication: MYOCARDIAL INFARCTION
  4. HEPARIN [Concomitant]
     Indication: ANGINA UNSTABLE
  5. HEPARIN [Concomitant]
     Indication: MYOCARDIAL INFARCTION
  6. ASPIRIN [Concomitant]
     Indication: ANGINA UNSTABLE
  7. ASPIRIN [Concomitant]
     Indication: MYOCARDIAL INFARCTION
  8. INTEGRILIN [Concomitant]
     Indication: ANGINA UNSTABLE
  9. INTEGRILIN [Concomitant]
     Indication: MYOCARDIAL INFARCTION

REACTIONS (2)
  - CARDIAC TAMPONADE [None]
  - HAEMOTHORAX [None]
